FAERS Safety Report 10728053 (Version 2)
Quarter: 2015Q1

REPORT INFORMATION
  Report Type: Spontaneous
  Country: US (occurrence: US)
  Receive Date: 20150121
  Receipt Date: 20150209
  Transmission Date: 20150721
  Serious: Yes (Hospitalization, Other)
  Sender: FDA-Public Use
  Company Number: US-PFIZER INC-2015019548

PATIENT
  Age: 88 Year
  Sex: Male

DRUGS (1)
  1. XALATAN [Suspect]
     Active Substance: LATANOPROST
     Indication: GLAUCOMA
     Dosage: 50 MCG/ML, 1X/DAY
     Route: 047

REACTIONS (8)
  - Cough [Unknown]
  - Fall [Unknown]
  - Blindness [Not Recovered/Not Resolved]
  - Glaucoma [Not Recovered/Not Resolved]
  - Hypertension [Recovered/Resolved]
  - Nasopharyngitis [Unknown]
  - Weight decreased [Unknown]
  - Visual field defect [Unknown]

NARRATIVE: CASE EVENT DATE: 2012
